FAERS Safety Report 15446795 (Version 1)
Quarter: 2018Q3

REPORT INFORMATION
  Report Type: Spontaneous
  Country: US (occurrence: US)
  Receive Date: 20180925
  Receipt Date: 20180925
  Transmission Date: 20181010
  Serious: Yes (Hospitalization)
  Sender: FDA-Public Use
  Company Number: None

PATIENT
  Age: 43 Year
  Sex: Female
  Weight: 68 kg

DRUGS (1)
  1. NOLVADEX [Suspect]
     Active Substance: TAMOXIFEN CITRATE
     Dates: start: 20180822

REACTIONS (3)
  - Dehydration [None]
  - Intestinal obstruction [None]
  - Ovarian neoplasm [None]

NARRATIVE: CASE EVENT DATE: 20180903
